FAERS Safety Report 5032624-5 (Version None)
Quarter: 2006Q2

REPORT INFORMATION
  Report Type: 
  Country: None (occurrence: None)
  Receive Date: 20060620
  Receipt Date: 20060612
  Transmission Date: 20061013
  Serious: Yes (Hospitalization, Other)
  Sender: FDA-Public Use
  Company Number: 2006074990

PATIENT
  Age: 64 Year
  Sex: Male
  Weight: 117.9352 kg

DRUGS (1)
  1. BEXTRA [Suspect]
     Indication: OSTEOARTHRITIS
     Dosage: 20 MG (20 MG, 1 IN 1 D),
     Dates: start: 20030101, end: 20041117

REACTIONS (5)
  - CARDIAC DISORDER [None]
  - MYOCARDIAL INFARCTION [None]
  - POSTOPERATIVE INFECTION [None]
  - PULMONARY OEDEMA [None]
  - STAPHYLOCOCCAL INFECTION [None]
